FAERS Safety Report 8404881-6 (Version None)
Quarter: 2012Q2

REPORT INFORMATION
  Report Type: 
  Country: None (occurrence: None)
  Receive Date: 20120601
  Receipt Date: 20110620
  Transmission Date: 20120825
  Serious: No
  Sender: FDA-Public Use
  Company Number: US-ASTRAZENECA-2011SE37603

PATIENT
  Age: 63 Year
  Sex: Female

DRUGS (2)
  1. ATACAND HCT [Suspect]
     Dosage: 32-12.5 MILLIGRAMS EVERY MORNING
     Route: 048
  2. ATENOLOL [Suspect]
     Route: 065

REACTIONS (4)
  - WRONG TECHNIQUE IN DRUG USAGE PROCESS [None]
  - CHEST PAIN [None]
  - DRUG DOSE OMISSION [None]
  - HYPERTENSION [None]
